FAERS Safety Report 6746938-1 (Version None)
Quarter: 2010Q2

REPORT INFORMATION
  Report Type: 
  Country: None (occurrence: None)
  Receive Date: 20100528
  Receipt Date: 20091124
  Transmission Date: 20101027
  Serious: No
  Sender: FDA-Public Use
  Company Number: US-ASTRAZENECA-2009SE31737

PATIENT

DRUGS (6)
  1. PRILOSEC OTC [Suspect]
     Route: 048
  2. BLOOD PRESSURE MEDICATION [Concomitant]
     Dosage: UNKNOWN
  3. ASPIRIN [Concomitant]
     Dosage: UNKNOWN
  4. MAGNESIUM [Concomitant]
     Dosage: UNKNOWN
  5. MULTIVITAMIN                       /00097801/ [Concomitant]
     Dosage: UNKNOWN
  6. DIURETICS [Concomitant]
     Dosage: UNKNOWN

REACTIONS (3)
  - ABDOMINAL DISCOMFORT [None]
  - ABDOMINAL DISTENSION [None]
  - INCORRECT DRUG ADMINISTRATION DURATION [None]
